FAERS Safety Report 12127999 (Version 3)
Quarter: 2017Q1

REPORT INFORMATION
  Report Type: Spontaneous
  Country: US (occurrence: US)
  Receive Date: 20160226
  Receipt Date: 20170127
  Transmission Date: 20170428
  Serious: Yes (Other)
  Sender: FDA-Public Use
  Company Number: US-BAYER-2016-036602

PATIENT
  Age: 35 Year
  Sex: Female

DRUGS (1)
  1. MIRENA [Suspect]
     Active Substance: LEVONORGESTREL
     Indication: CONTRACEPTION
     Dosage: 20 MCG/24HR, CONT
     Route: 015
     Dates: start: 20150511, end: 20160210

REACTIONS (5)
  - Device use error [None]
  - Device dislocation [None]
  - Dyspareunia [None]
  - Drug effect decreased [None]
  - Polymenorrhoea [None]

NARRATIVE: CASE EVENT DATE: 201505
